FAERS Safety Report 4436581-1 (Version None)
Quarter: 2004Q3

REPORT INFORMATION
  Report Type: 
  Country: None (occurrence: None)
  Receive Date: 20040830
  Receipt Date: 20040707
  Transmission Date: 20050211
  Serious: No
  Sender: FDA-Public Use
  Company Number: US-BRISTOL-MYERS SQUIBB COMPANY-12634580

PATIENT
  Age: 53 Year
  Sex: Female
  Weight: 68 kg

DRUGS (2)
  1. ABILIFY [Suspect]
     Indication: AFFECTIVE DISORDER
     Dosage: INITIAL DOSE: 15 MG/DAY REDUCED TO 10 MG/DAY, THEN 5 MG/DAY
     Route: 048
     Dates: start: 20030512
  2. ABILIFY [Suspect]
     Indication: PSYCHOTIC DISORDER
     Dosage: INITIAL DOSE: 15 MG/DAY REDUCED TO 10 MG/DAY, THEN 5 MG/DAY
     Route: 048
     Dates: start: 20030512

REACTIONS (1)
  - WEIGHT INCREASED [None]
